FAERS Safety Report 9736221 (Version 2)
Quarter: 2013Q4

REPORT INFORMATION
  Report Type: Spontaneous
  Country: US (occurrence: US)
  Receive Date: 20131206
  Receipt Date: 20131212
  Transmission Date: 20140711
  Serious: No
  Sender: FDA-Public Use
  Company Number: US-PFIZER INC-2013345714

PATIENT
  Age: 53 Year
  Sex: Male
  Weight: 83.9 kg

DRUGS (2)
  1. VIAGRA [Suspect]
     Indication: ERECTILE DYSFUNCTION
     Dosage: 100 MG, AS NEEDED
     Route: 048
  2. ENTOCORT [Concomitant]
     Dosage: UNK

REACTIONS (4)
  - Nasal congestion [Unknown]
  - Flushing [Unknown]
  - Headache [Unknown]
  - Drug ineffective [Unknown]
